FAERS Safety Report 9655821 (Version 1)
Quarter: 2013Q4

REPORT INFORMATION
  Report Type: Spontaneous
  Country: US (occurrence: US)
  Receive Date: 20131030
  Receipt Date: 20131030
  Transmission Date: 20140711
  Serious: No
  Sender: FDA-Public Use
  Company Number: US-BIOGENIDEC-2013BI103687

PATIENT
  Age: 29 Year
  Sex: Female

DRUGS (6)
  1. AVONEX [Suspect]
     Indication: MULTIPLE SCLEROSIS
     Route: 030
     Dates: start: 20080201
  2. AVONEX [Suspect]
     Indication: MULTIPLE SCLEROSIS
     Route: 030
     Dates: start: 20110918, end: 20121115
  3. ALPRAZOLAM [Concomitant]
     Route: 048
  4. OXYBUTYNIN [Concomitant]
     Indication: POLLAKIURIA
     Route: 048
  5. ACETAMINOPHEN/CODEINE [Concomitant]
     Indication: HEADACHE
  6. CYCLOBENZAPRINE [Concomitant]
     Indication: MUSCLE SPASMS

REACTIONS (1)
  - Nuclear magnetic resonance imaging abnormal [Unknown]
